FAERS Safety Report 8310663 (Version 3)
Quarter: 2012Q4

REPORT INFORMATION
  Report Type: 
  Country: FR (occurrence: FR)
  Receive Date: 20111226
  Receipt Date: 20120928
  Transmission Date: 20130627
  Serious: Yes (Hospitalization, Other)
  Sender: FDA-Public Use
  Company Number: FR-AMGEN-FRASP2011067725

PATIENT
  Age: 28 Year
  Sex: Male

DRUGS (5)
  1. ENBREL [Suspect]
     Indication: ANKYLOSING SPONDYLITIS
     Dosage: 50 mg, weekly
     Route: 058
     Dates: start: 200509, end: 201108
  2. DAIVONEX [Concomitant]
     Dosage: UNK
  3. IXPRIM [Concomitant]
     Dosage: tabs
     Route: 048
  4. NAPROSYNE [Concomitant]
     Dosage: tabs
     Route: 048
  5. EUPANTOL [Concomitant]
     Dosage: tabs
     Route: 048

REACTIONS (1)
  - Testis cancer [Recovered/Resolved]
